FAERS Safety Report 5153224-2 (Version None)
Quarter: 2006Q4

REPORT INFORMATION
  Report Type: 
  Country: None (occurrence: None)
  Receive Date: 20061117
  Receipt Date: 20061101
  Transmission Date: 20070319
  Serious: Yes (Disabling, Other)
  Sender: FDA-Public Use
  Company Number: 2006AP05218

PATIENT
  Age: 47 Year
  Sex: Female

DRUGS (10)
  1. SEROQUEL [Suspect]
     Indication: SLEEP DISORDER
     Route: 048
  2. FLUVOXAMINE MALEATE [Concomitant]
  3. IMOVANE [Concomitant]
  4. ESTROGENIC SUBSTANCE [Concomitant]
  5. NEXIUM [Concomitant]
     Indication: BARRETT'S OESOPHAGUS
     Route: 048
  6. NOVORAPID [Concomitant]
     Dosage: VARYING DOSE
  7. PROTOPHANE [Concomitant]
     Dosage: VARYING DOSE
  8. SERETIDE [Concomitant]
  9. SPIRIVA [Concomitant]
  10. VENTOLIN [Concomitant]

REACTIONS (2)
  - PARALYSIS [None]
  - TRANSIENT ISCHAEMIC ATTACK [None]
